FAERS Safety Report 5374926-9 (Version None)
Quarter: 2007Q2

REPORT INFORMATION
  Report Type: 
  Country: None (occurrence: None)
  Receive Date: 20070625
  Receipt Date: 20070522
  Transmission Date: 20071010
  Serious: No
  Sender: FDA-Public Use
  Company Number: 07P-163-0369209-00

PATIENT
  Sex: 0

DRUGS (1)
  1. HUMIRA [Suspect]

REACTIONS (1)
  - PROSTATE CANCER [None]
